FAERS Safety Report 6738508-6 (Version None)
Quarter: 2010Q2

REPORT INFORMATION
  Report Type: 
  Country: None (occurrence: None)
  Receive Date: 20100524
  Receipt Date: 20100512
  Transmission Date: 20101027
  Serious: Yes (Other)
  Sender: FDA-Public Use
  Company Number: PHHY2010CA30827

PATIENT

DRUGS (3)
  1. ALISKIREN ALI+ [Suspect]
     Dosage: 150 MG
  2. BETA BLOCKING AGENTS [Concomitant]
  3. DIURETICS [Concomitant]

REACTIONS (1)
  - URINE ALBUMIN/CREATININE RATIO [None]
